FAERS Safety Report 11660594 (Version 1)
Quarter: 2015Q4

REPORT INFORMATION
  Report Type: Spontaneous
  Country: US (occurrence: None)
  Receive Date: 20151023
  Receipt Date: 20151023
  Transmission Date: 20160304
  Serious: Yes (Hospitalization)
  Sender: FDA-Public Use
  Company Number: None

PATIENT
  Age: 66 Year
  Sex: Female
  Weight: 61.4 kg

DRUGS (1)
  1. ARMODAFINIL. [Suspect]
     Active Substance: ARMODAFINIL
     Dates: end: 20150909

REACTIONS (4)
  - Unresponsive to stimuli [None]
  - Fall [None]
  - Head injury [None]
  - Eye movement disorder [None]

NARRATIVE: CASE EVENT DATE: 20150914
